FAERS Safety Report 6046785-2 (Version None)
Quarter: 2009Q1

REPORT INFORMATION
  Report Type: 
  Country: None (occurrence: None)
  Receive Date: 20090122
  Receipt Date: 20090116
  Transmission Date: 20090719
  Serious: Yes (Hospitalization)
  Sender: FDA-Public Use
  Company Number: A0709953A

PATIENT
  Age: 57 Year
  Sex: Female
  Weight: 70 kg

DRUGS (6)
  1. AVANDIA [Suspect]
     Dosage: 2MG PER DAY
     Route: 048
     Dates: start: 20060417, end: 20070201
  2. AVANDAMET [Suspect]
     Route: 048
     Dates: start: 20050902, end: 20060301
  3. METFORMIN [Concomitant]
     Dates: start: 20060316
  4. METOPROLOL TARTRATE [Concomitant]
  5. TRICOR [Concomitant]
  6. LISINOPRIL [Concomitant]

REACTIONS (2)
  - ACUTE CORONARY SYNDROME [None]
  - MYOCARDIAL INFARCTION [None]
